FAERS Safety Report 12458970 (Version 1)
Quarter: 2016Q2

REPORT INFORMATION
  Report Type: Report from Study
  Country: IT (occurrence: IT)
  Receive Date: 20160613
  Receipt Date: 20160613
  Transmission Date: 20160815
  Serious: Yes (Hospitalization)
  Sender: FDA-Public Use
  Company Number: IT-AUROBINDO-AUR-APL-2016-07583

PATIENT
  Age: 74 Year
  Sex: Female

DRUGS (5)
  1. METHYLTHIONIUM CHLORIDE PROVEBLUE [Interacting]
     Active Substance: METHYLENE BLUE
     Indication: VASOPLEGIA SYNDROME
     Dosage: 100 MG, UNK
     Route: 065
  2. SERTRALINE [Suspect]
     Active Substance: SERTRALINE HYDROCHLORIDE
     Indication: ANTIDEPRESSANT THERAPY
     Dosage: 25 MG, DAILY
     Route: 065
  3. TRAZODONE [Interacting]
     Active Substance: TRAZODONE HYDROCHLORIDE
     Indication: PRODUCT USED FOR UNKNOWN INDICATION
     Route: 065
  4. FENTANYL. [Interacting]
     Active Substance: FENTANYL
     Indication: ANAESTHESIA
     Dosage: 250 ?G, UNK
     Route: 065
  5. AMISULPRIDE [Interacting]
     Active Substance: AMISULPRIDE
     Indication: PRODUCT USED FOR UNKNOWN INDICATION
     Route: 065

REACTIONS (9)
  - Cardiogenic shock [Unknown]
  - Multiple organ dysfunction syndrome [Unknown]
  - Toxicity to various agents [Unknown]
  - Coma [Unknown]
  - Agitation [Unknown]
  - Drug interaction [Unknown]
  - Serotonin syndrome [Unknown]
  - Sepsis [Unknown]
  - Nystagmus [Unknown]
